FAERS Safety Report 21053650 (Version 1)
Quarter: 2022Q3

REPORT INFORMATION
  Report Type: Spontaneous
  Country: CN (occurrence: CN)
  Receive Date: 20220707
  Receipt Date: 20220707
  Transmission Date: 20221027
  Serious: Yes (Other)
  Sender: FDA-Public Use
  Company Number: CN-SA-SAC20220706001941

PATIENT
  Age: 68 Year
  Sex: Male
  Weight: 71 kg

DRUGS (2)
  1. ELOXATIN [Suspect]
     Active Substance: OXALIPLATIN
     Indication: Hepatic cancer
     Dosage: ROUTE: HEPATIC ARTERY INFUSION
     Dates: start: 20220614, end: 20220614
  2. RALTITREXED [Suspect]
     Active Substance: RALTITREXED
     Indication: Hepatic cancer
     Dosage: HEPATIC ARTERY INFUSION
     Dates: start: 20220614, end: 20220614

REACTIONS (2)
  - Liver injury [Recovering/Resolving]
  - Platelet count decreased [Recovering/Resolving]

NARRATIVE: CASE EVENT DATE: 20220616
